FAERS Safety Report 6066168-9 (Version None)
Quarter: 2009Q1

REPORT INFORMATION
  Report Type: 
  Country: None (occurrence: None)
  Receive Date: 20090205
  Receipt Date: 20090126
  Transmission Date: 20090719
  Serious: Yes (Other)
  Sender: FDA-Public Use
  Company Number: PHHY2009NO02749

PATIENT
  Sex: Female

DRUGS (2)
  1. ZOMETA [Suspect]
  2. CHEMOTHERAPEUTICS NOS [Concomitant]

REACTIONS (3)
  - OSTEITIS [None]
  - OSTEONECROSIS [None]
  - TOOTH EXTRACTION [None]
